FAERS Safety Report 6567958-6 (Version None)
Quarter: 2010Q1

REPORT INFORMATION
  Report Type: 
  Country: None (occurrence: None)
  Receive Date: 20100203
  Receipt Date: 20100122
  Transmission Date: 20100710
  Serious: Yes (Hospitalization)
  Sender: FDA-Public Use
  Company Number: FR-PFIZER INC-2010009086

PATIENT
  Age: 59 Year
  Sex: Male
  Weight: 59 kg

DRUGS (9)
  1. AZADOSE [Suspect]
     Dosage: 1.2 G, WEEKLY
     Route: 048
     Dates: start: 20090530
  2. TRUVADA [Suspect]
     Dosage: 1 DF, 1X/DAY
     Route: 048
     Dates: start: 20090530
  3. REYATAZ [Suspect]
     Dosage: 300MG/DAY
     Route: 048
     Dates: start: 20090530
  4. NORVIR [Suspect]
     Dosage: 100 MG, 1X/DAY
     Route: 048
     Dates: start: 20090530
  5. BACTRIM [Suspect]
     Dosage: 1 DF, 1X/DAY
     Route: 048
     Dates: start: 20090530
  6. RAMIPRIL [Suspect]
     Dosage: 5 MG, 1X/DAY
     Route: 048
     Dates: start: 20090530
  7. NEBIVOLOL [Suspect]
     Dosage: 5 MG, 1X/DAY
     Route: 048
     Dates: start: 20090530
  8. IMODIUM [Suspect]
     Dosage: 4 MG, WEEKLY
     Route: 048
     Dates: start: 20090530
  9. DIFFU K [Suspect]
     Dosage: 600 MG, 2X/DAY
     Route: 048
     Dates: start: 20090530

REACTIONS (3)
  - DYSPNOEA [None]
  - HYPERCAPNIA [None]
  - PERIPHERAL MOTOR NEUROPATHY [None]
